FAERS Safety Report 8922753 (Version 2)
Quarter: 2012Q4

REPORT INFORMATION
  Report Type: Report from Study
  Country: IN (occurrence: IN)
  Receive Date: 20121123
  Receipt Date: 20121129
  Transmission Date: 20130627
  Serious: Yes (Death, Hospitalization)
  Sender: FDA-Public Use
  Company Number: IN-ROCHE-1158442

PATIENT
  Age: 40 Year
  Sex: Female
  Weight: 66 kg

DRUGS (2)
  1. BEVACIZUMAB [Suspect]
     Indication: BREAST CANCER METASTATIC
     Dosage: on day 1
     Route: 042
     Dates: start: 20121030
  2. CAPECITABINE [Suspect]
     Indication: BREAST CANCER METASTATIC
     Dosage: day1-14 of each 3-week cycle
     Route: 048

REACTIONS (1)
  - Headache [Fatal]
